FAERS Safety Report 23913459 (Version 5)
Quarter: 2024Q3

REPORT INFORMATION
  Report Type: Spontaneous
  Country: CA (occurrence: CA)
  Receive Date: 20240529
  Receipt Date: 20240713
  Transmission Date: 20241016
  Serious: Yes (Hospitalization, Other)
  Sender: CELLTRION
  Company Number: CA-CELLTRION INC.-2024CA011397

PATIENT

DRUGS (18)
  1. INFLECTRA [Suspect]
     Active Substance: INFLIXIMAB-DYYB
     Indication: Colitis ulcerative
     Dosage: 5 MG/KG, EVERY 4 WEEKS
     Route: 042
     Dates: start: 20240410
  2. INFLECTRA [Suspect]
     Active Substance: INFLIXIMAB-DYYB
     Dosage: 515 MG (5 MG/KG), AFTER 4 WEEKS AND 1 DAY (PRESCRIBED EVERY 4 WEEKS)
     Route: 042
     Dates: start: 20240509
  3. INFLECTRA [Suspect]
     Active Substance: INFLIXIMAB-DYYB
     Dosage: 515 MG (5 MG/KG), AFTER 4 WEEKS AND 1 DAY (PRESCRIBED EVERY 4 WEEKS)
     Route: 042
     Dates: start: 20240522
  4. INFLECTRA [Suspect]
     Active Substance: INFLIXIMAB-DYYB
     Dosage: 485 MG, (5 MG/KG) EVERY 4 WEEK (AFTER 5 WEEKS AND 5 DAYS)
     Route: 042
     Dates: start: 20240618
  5. ASPIRIN [Concomitant]
     Active Substance: ASPIRIN
     Dosage: 1 DF
     Route: 065
  6. ALLOPURINOL [Concomitant]
     Active Substance: ALLOPURINOL
     Dosage: 1 DF
     Route: 065
  7. APO-METOPROLOL (TYPE L) [Concomitant]
     Dosage: 1 DF
     Route: 065
  8. ASPIRIN [Concomitant]
     Active Substance: ASPIRIN
     Dosage: 1 DF
     Route: 065
  9. CALCIUM [Concomitant]
     Active Substance: CALCIUM
     Dosage: 500 MG, 2X/DAY
     Route: 065
  10. CITALOPRAM [Concomitant]
     Active Substance: CITALOPRAM\CITALOPRAM HYDROBROMIDE
     Dosage: 1 DF
     Route: 065
  11. JAMP RAMIPRIL [Concomitant]
     Dosage: 1 DF
     Route: 065
  12. LANTUS [Concomitant]
     Active Substance: INSULIN GLARGINE
     Dosage: 1 DF
     Route: 065
  13. MESALAMINE [Concomitant]
     Active Substance: MESALAMINE
     Dosage: 1 DF
     Route: 065
     Dates: start: 2017
  14. MYLAN ESOMEPRAZOLE [Concomitant]
     Dosage: 1 DF
     Route: 065
  15. NITROGLYCERIN [Concomitant]
     Active Substance: NITROGLYCERIN
     Dosage: 1 DF, AS NEEDED
     Route: 060
  16. ROSUVASTATIN [Concomitant]
     Active Substance: ROSUVASTATIN
     Dosage: 1 DF
     Route: 065
  17. AMLODIPINE BESYLATE [Concomitant]
     Active Substance: AMLODIPINE BESYLATE
     Dosage: 1 DF
     Route: 065
  18. TAMSULOSIN [Concomitant]
     Active Substance: TAMSULOSIN
     Dosage: 1 DF
     Route: 065

REACTIONS (4)
  - Ligament rupture [Recovering/Resolving]
  - Gait disturbance [Recovering/Resolving]
  - Wound [Recovering/Resolving]
  - Inappropriate schedule of product administration [Unknown]

NARRATIVE: CASE EVENT DATE: 20240101
